FAERS Safety Report 5408283-6 (Version None)
Quarter: 2007Q3

REPORT INFORMATION
  Report Type: 
  Country: None (occurrence: None)
  Receive Date: 20070806
  Receipt Date: 20070806
  Transmission Date: 20080115
  Serious: Yes (Hospitalization)
  Sender: FDA-Public Use
  Company Number: None

PATIENT
  Age: 86 Year
  Sex: Male
  Weight: 92.3977 kg

DRUGS (2)
  1. ASPIRIN [Suspect]
     Dosage: 325 MG DAILY PO
     Route: 048
     Dates: start: 20050406, end: 20070507
  2. CLOPIDOGREL [Suspect]
     Indication: PERIPHERAL VASCULAR DISORDER
     Dosage: 75MG EVERY DAY PO
     Route: 048
     Dates: start: 20060829, end: 20070507

REACTIONS (2)
  - HAEMATURIA [None]
  - HAEMOPTYSIS [None]
